FAERS Safety Report 9668008 (Version 3)
Quarter: 2013Q4

REPORT INFORMATION
  Report Type: Report from Study
  Country: AU (occurrence: AU)
  Receive Date: 20131104
  Receipt Date: 20131119
  Transmission Date: 20140711
  Serious: Yes (Hospitalization)
  Sender: FDA-Public Use
  Company Number: AU-GLAXOSMITHKLINE-B0938242A

PATIENT
  Age: 84 Year
  Sex: Male
  Weight: 80 kg

DRUGS (9)
  1. DOCUSATE SODIUM\SENNOSIDES [Concomitant]
     Indication: CONSTIPATION PROPHYLAXIS
     Route: 048
     Dates: start: 20131028
  2. NORMAL SALINE [Concomitant]
     Indication: DEHYDRATION
     Route: 042
     Dates: start: 20131029, end: 20131029
  3. DABRAFENIB [Suspect]
     Indication: METASTATIC MALIGNANT MELANOMA
     Dosage: 150MG TWICE PER DAY
     Route: 048
     Dates: start: 20131010
  4. TRAMETINIB [Suspect]
     Indication: METASTATIC MALIGNANT MELANOMA
     Dosage: 2MG PER DAY
     Route: 048
     Dates: start: 20131010
  5. COVERSYL [Concomitant]
     Indication: HYPERTENSION
     Route: 048
     Dates: start: 20130821
  6. ALLOPURINOL [Concomitant]
     Indication: GOUT
     Dosage: 100MG PER DAY
     Route: 048
  7. ENOXAPARIN [Concomitant]
     Indication: THROMBOSIS PROPHYLAXIS
     Dosage: 40MG PER DAY
     Route: 058
     Dates: start: 20131028, end: 20131029
  8. HARTMANN^S SOLUTION [Concomitant]
     Indication: DEHYDRATION
     Route: 042
     Dates: start: 20131028, end: 20131028
  9. NORMAL SALINE [Concomitant]
     Indication: DEHYDRATION
     Route: 042
     Dates: start: 20131028, end: 20131028

REACTIONS (2)
  - Pyrexia [Recovered/Resolved with Sequelae]
  - Pyrexia [Recovered/Resolved with Sequelae]
